FAERS Safety Report 11996528 (Version 4)
Quarter: 2016Q2

REPORT INFORMATION
  Report Type: Spontaneous
  Country: US (occurrence: US)
  Receive Date: 20160203
  Receipt Date: 20160502
  Transmission Date: 20160815
  Serious: No
  Sender: FDA-Public Use
  Company Number: US-GLAXOSMITHKLINE-US2016GSK010898

PATIENT
  Age: 5 Year
  Sex: Male

DRUGS (1)
  1. CEFTIN [Suspect]
     Active Substance: CEFUROXIME AXETIL
     Indication: LYME DISEASE
     Dosage: 6 ML, BID, 250MG/5ML
     Route: 048
     Dates: start: 20150623, end: 20150730

REACTIONS (9)
  - Extra dose administered [Unknown]
  - Product deposit [Unknown]
  - Product difficult to remove [Unknown]
  - Product quality issue [Unknown]
  - Drug administered to patient of inappropriate age [Recovered/Resolved]
  - Wrong technique in product usage process [Unknown]
  - Liquid product physical issue [Unknown]
  - Product packaging issue [Unknown]
  - Accidental underdose [Unknown]

NARRATIVE: CASE EVENT DATE: 20150623
